FAERS Safety Report 20541489 (Version 4)
Quarter: 2022Q2

REPORT INFORMATION
  Report Type: Spontaneous
  Country: IT (occurrence: IT)
  Receive Date: 20220302
  Receipt Date: 20220524
  Transmission Date: 20220720
  Serious: Yes (Other)
  Sender: FDA-Public Use
  Company Number: None

PATIENT
  Age: 31 Year
  Sex: Female

DRUGS (2)
  1. LEVETIRACETAM [Suspect]
     Active Substance: LEVETIRACETAM
     Indication: Epilepsy
     Dosage: 1500 MG, QD (750 MILLIGRAM, 2X/DAY (BID))
     Route: 048
     Dates: start: 20210416
  2. RIVOTRIL [Concomitant]
     Active Substance: CLONAZEPAM
     Indication: Product used for unknown indication
     Dosage: 5 DRP, QD (1/12 MILLILITRE)
     Route: 065

REACTIONS (6)
  - Syncope [Not Recovered/Not Resolved]
  - Progressive multifocal leukoencephalopathy [Unknown]
  - Iron deficiency anaemia [Unknown]
  - Vomiting [Not Recovered/Not Resolved]
  - Epilepsy [Not Recovered/Not Resolved]
  - Confusional state [Not Recovered/Not Resolved]

NARRATIVE: CASE EVENT DATE: 20220131
